FAERS Safety Report 13333122 (Version 2)
Quarter: 2017Q2

REPORT INFORMATION
  Report Type: Spontaneous
  Country: US (occurrence: US)
  Receive Date: 20170314
  Receipt Date: 20170503
  Transmission Date: 20170830
  Serious: No
  Sender: FDA-Public Use
  Company Number: US-GLAXOSMITHKLINE-US2017034662

PATIENT
  Sex: Female

DRUGS (1)
  1. TANZEUM [Suspect]
     Active Substance: ALBIGLUTIDE
     Indication: DIABETES MELLITUS
     Dosage: 50 MG, WE
     Route: 042

REACTIONS (7)
  - Injection site rash [Recovering/Resolving]
  - Injection site pruritus [Recovered/Resolved]
  - Weight decreased [Unknown]
  - Product quality issue [Unknown]
  - Injection site erythema [Recovering/Resolving]
  - Injection site pain [Recovered/Resolved]
  - Injection site warmth [Recovered/Resolved]

NARRATIVE: CASE EVENT DATE: 20170221
